FAERS Safety Report 7608685-3 (Version None)
Quarter: 2011Q3

REPORT INFORMATION
  Report Type: 
  Country: None (occurrence: None)
  Receive Date: 20110713
  Receipt Date: 20110713
  Transmission Date: 20111222
  Serious: Yes (Life-Threatening, Hospitalization, Disabling)
  Sender: FDA-Public Use
  Company Number: None

PATIENT
  Age: 59 Year
  Sex: Female
  Weight: 113.3993 kg

DRUGS (1)
  1. COUMADIN [Suspect]

REACTIONS (3)
  - DRUG INTERACTION [None]
  - CEREBROVASCULAR DISORDER [None]
  - CEREBRAL HAEMORRHAGE [None]
